FAERS Safety Report 15935906 (Version 2)
Quarter: 2019Q1

REPORT INFORMATION
  Report Type: Other
  Country: IT (occurrence: IT)
  Receive Date: 20190208
  Receipt Date: 20190306
  Transmission Date: 20190417
  Serious: Yes (Hospitalization)
  Sender: FDA-Public Use
  Company Number: IT-ACCORD-106175

PATIENT
  Age: 73 Year
  Sex: Female

DRUGS (8)
  1. LOSARTAN. [Suspect]
     Active Substance: LOSARTAN
     Indication: HYPERTENSION
     Dosage: STRENGTH: 100 MG
     Route: 048
     Dates: start: 20180101, end: 20180401
  2. DAPAROX [Concomitant]
     Active Substance: PAROXETINE
     Dosage: STRENGTH: 20 MG
  3. LITHIUM. [Concomitant]
     Active Substance: LITHIUM
     Dosage: STRENGTH: 300 MG, CAPSULE RIGIDE
  4. LASIX [Suspect]
     Active Substance: FUROSEMIDE
     Indication: HYPERTENSION
     Route: 042
     Dates: start: 20180101, end: 20180401
  5. EUTIROX [Concomitant]
     Active Substance: LEVOTHYROXINE SODIUM
     Dosage: STRENGTH: 50 MICROGRAM
  6. TRIAZOLAM. [Concomitant]
     Active Substance: TRIAZOLAM
  7. CLOZAPINE. [Concomitant]
     Active Substance: CLOZAPINE
     Dosage: STRENGTH: 100 MG
  8. RAMIPRIL. [Suspect]
     Active Substance: RAMIPRIL
     Indication: HYPERTENSION
     Route: 048
     Dates: start: 20180101, end: 20180401

REACTIONS (3)
  - Acute respiratory failure [Unknown]
  - Carbon dioxide increased [Unknown]
  - Acute kidney injury [Unknown]

NARRATIVE: CASE EVENT DATE: 20180331
